FAERS Safety Report 6535929-1 (Version None)
Quarter: 2010Q1

REPORT INFORMATION
  Report Type: 
  Country: None (occurrence: None)
  Receive Date: 20100113
  Receipt Date: 20100111
  Transmission Date: 20100710
  Serious: Yes (Other)
  Sender: FDA-Public Use
  Company Number: A0835422A

PATIENT
  Age: 58 Year
  Sex: Female

DRUGS (9)
  1. TYKERB [Suspect]
     Indication: BREAST CANCER
     Dosage: 5TAB PER DAY
     Route: 048
     Dates: start: 20091211, end: 20100106
  2. XELODA [Suspect]
     Indication: DRUG USE FOR UNKNOWN INDICATION
     Dosage: 500MG TWICE PER DAY
     Route: 065
     Dates: start: 20091214
  3. COMPAZINE [Suspect]
     Indication: ULCER
     Route: 048
     Dates: start: 19690101
  4. LISINOPRIL [Concomitant]
  5. PROTONIX [Concomitant]
  6. VITAMIN E [Concomitant]
  7. CENTRUM [Concomitant]
  8. FLAX SEED OIL [Concomitant]
  9. FIORICET [Concomitant]

REACTIONS (7)
  - DIARRHOEA [None]
  - FATIGUE [None]
  - GINGIVAL PAIN [None]
  - GLOSSOPTOSIS [None]
  - HEPATIC ENZYME INCREASED [None]
  - MUSCLE CONTRACTIONS INVOLUNTARY [None]
  - PARAESTHESIA [None]
